FAERS Safety Report 9238117 (Version 1)
Quarter: 2013Q1

REPORT INFORMATION
  Report Type: Spontaneous
  Country: US (occurrence: None)
  Receive Date: 20121106
  Receipt Date: 20121106
  Transmission Date: 20140127
  Serious: No
  Sender: FDA-Public Use
  Company Number: 1000037751

PATIENT
  Sex: Male

DRUGS (1)
  1. DALIRESP [Suspect]
     Route: 048
     Dates: start: 20120809

REACTIONS (4)
  - Headache [None]
  - Dizziness [None]
  - Restlessness [None]
  - Malaise [None]
